FAERS Safety Report 10195898 (Version 1)
Quarter: 2014Q2

REPORT INFORMATION
  Report Type: Spontaneous
  Country: US (occurrence: US)
  Receive Date: 20140527
  Receipt Date: 20140527
  Transmission Date: 20141212
  Serious: Yes (Hospitalization, Other)
  Sender: FDA-Public Use
  Company Number: US-TEVA-483343USA

PATIENT
  Age: 22 Year
  Sex: Male

DRUGS (1)
  1. BACTRIM [Suspect]
     Indication: ACNE
     Dosage: 480 MG TWICE DAILY
     Route: 065

REACTIONS (1)
  - Hypersensitivity vasculitis [Recovered/Resolved]
